FAERS Safety Report 15707591 (Version 2)
Quarter: 2019Q3

REPORT INFORMATION
  Report Type: Report from Study
  Country: US (occurrence: US)
  Receive Date: 20181211
  Receipt Date: 20190711
  Transmission Date: 20191004
  Serious: Yes (Hospitalization)
  Sender: FDA-Public Use
  Company Number: US-UCBSA-2018053472

PATIENT
  Age: 25 Year
  Sex: Male

DRUGS (4)
  1. LACOSAMIDE. [Suspect]
     Active Substance: LACOSAMIDE
     Indication: PARTIAL SEIZURES
     Dosage: 300MG DAILY
     Dates: start: 2016
  2. LACOSAMIDE. [Suspect]
     Active Substance: LACOSAMIDE
     Dosage: 350MG DAILY
     Dates: start: 2018
  3. LACOSAMIDE. [Suspect]
     Active Substance: LACOSAMIDE
     Dosage: 200MG 1BID, 100MG, 2X/DAY (BID)
     Dates: start: 20181213
  4. LACOSAMIDE. [Suspect]
     Active Substance: LACOSAMIDE
     Indication: SEIZURE
     Dosage: 100 MG, 2X/DAY (BID)
     Dates: start: 201510, end: 2016

REACTIONS (4)
  - Intentional product misuse [Unknown]
  - Overdose [Unknown]
  - Aura [Unknown]
  - Seizure [Unknown]

NARRATIVE: CASE EVENT DATE: 2016
